FAERS Safety Report 6491791-7 (Version None)
Quarter: 2009Q4

REPORT INFORMATION
  Report Type: 
  Country: None (occurrence: None)
  Receive Date: 20091125
  Receipt Date: 20090513
  Transmission Date: 20100525
  Serious: Yes (Other)
  Sender: FDA-Public Use
  Company Number: 2009BH008508

PATIENT
  Age: 66 Year
  Sex: Male
  Weight: 81.6928 kg

DRUGS (23)
  1. DIANEAL [Suspect]
     Indication: PERITONEAL DIALYSIS
     Dosage: 12.5 L;EVERY DAY; IP
     Dates: start: 20080507
  2. ACETAMINOPHEN [Concomitant]
  3. ADVIL [Concomitant]
  4. AMITRIPTYLINE HCL [Concomitant]
  5. DIPHENHYDRAMINE [Concomitant]
  6. DOXAZOSIN [Concomitant]
  7. FERROUS SULFATE TAB [Concomitant]
  8. FIBERCON [Concomitant]
  9. ALLIUM SATIVUM [Concomitant]
  10. HECTOROL [Concomitant]
  11. HYTRIN [Concomitant]
  12. LOPERAMIDE [Concomitant]
  13. LANTUS [Concomitant]
  14. LASIX [Concomitant]
  15. LISINOPRIL [Concomitant]
  16. LOPERAMIDE [Concomitant]
  17. LOVASTATIN [Concomitant]
  18. NEPHRO-VITE [Concomitant]
  19. NEPRO [Concomitant]
  20. NOVOLOG [Concomitant]
  21. PROMETHAZINE [Concomitant]
  22. RENAGEL [Concomitant]
  23. VICODIN [Concomitant]

REACTIONS (2)
  - PERITONEAL DIALYSIS COMPLICATION [None]
  - PERITONITIS BACTERIAL [None]
